FAERS Safety Report 7048917-6 (Version None)
Quarter: 2010Q4

REPORT INFORMATION
  Report Type: 
  Country: None (occurrence: None)
  Receive Date: 20101018
  Receipt Date: 20101008
  Transmission Date: 20110411
  Serious: Yes (Other)
  Sender: FDA-Public Use
  Company Number: CN-ASTRAZENECA-2010SE47636

PATIENT
  Age: 5 Year
  Sex: Male

DRUGS (3)
  1. PULMICORT AEROSOL [Suspect]
     Indication: ASTHMA
     Route: 055
     Dates: start: 20080101, end: 20100101
  2. NASONEX [Concomitant]
     Indication: RHINITIS
     Route: 045
  3. FLIXOTIDE AEROSOL [Concomitant]
     Indication: ASTHMA
     Route: 055
     Dates: start: 20080101, end: 20100101

REACTIONS (1)
  - OSTEONECROSIS [None]
